FAERS Safety Report 5177818-3 (Version None)
Quarter: 2006Q4

REPORT INFORMATION
  Report Type: 
  Country: None (occurrence: None)
  Receive Date: 20061208
  Receipt Date: 20060925
  Transmission Date: 20070319
  Serious: Yes (Other)
  Sender: FDA-Public Use
  Company Number: REM_00251_2006

PATIENT
  Age: 36 Year
  Sex: Female

DRUGS (5)
  1. REMODULIN [Suspect]
     Indication: PULMONARY HYPERTENSION
     Dosage: 140 NG/KG/MIN
     Route: 042
     Dates: start: 20050623
  2. BOSENTAN [Concomitant]
  3. PHENPROCOUMON [Concomitant]
  4. BUMETANIDE [Concomitant]
  5. SPIRONOLACTONE [Concomitant]

REACTIONS (9)
  - DIARRHOEA [None]
  - DIZZINESS [None]
  - DRUG ADMINISTRATION ERROR [None]
  - DYSPNOEA [None]
  - FLUSHING [None]
  - HEADACHE [None]
  - NAUSEA [None]
  - PALPITATIONS [None]
  - VOMITING [None]
